FAERS Safety Report 13739087 (Version 1)
Quarter: 2017Q3

REPORT INFORMATION
  Report Type: Spontaneous
  Country: US (occurrence: US)
  Receive Date: 20170710
  Receipt Date: 20170710
  Transmission Date: 20171127
  Serious: Yes (Hospitalization, Other)
  Sender: FDA-Public Use
  Company Number: US-SAOL THERAPEUTICS-0700819292

PATIENT
  Sex: Male
  Weight: 77.98 kg

DRUGS (6)
  1. MORPHINE [Suspect]
     Active Substance: MORPHINE
     Dosage: 0.5 ML, \DAY
     Route: 037
     Dates: start: 2003
  2. BACLOFEN. [Suspect]
     Active Substance: BACLOFEN
     Indication: PAIN
     Dosage: 0.5 ML, \DAY
     Route: 037
     Dates: start: 2003
  3. MORPHINE [Suspect]
     Active Substance: MORPHINE
     Dosage: 9.5 MG, \DAY
     Route: 037
  4. COMPOUNDED BACLOFEN [Suspect]
     Active Substance: BACLOFEN
     Indication: PAIN
  5. COMPOUNDED BACLOFEN [Suspect]
     Active Substance: BACLOFEN
     Indication: PAIN
     Dosage: 2.7 ?G, \DAY
     Route: 037
  6. MOTRIN [Suspect]
     Active Substance: IBUPROFEN
     Dosage: 800 MG, 3X/DAY
     Route: 048

REACTIONS (5)
  - Dry mouth [Recovered/Resolved]
  - Incorrect route of drug administration [Recovered/Resolved]
  - Off label use [Recovered/Resolved]
  - Chest discomfort [Unknown]
  - Pruritus [Recovered/Resolved]
